FAERS Safety Report 15211752 (Version 3)
Quarter: 2018Q3

REPORT INFORMATION
  Report Type: Spontaneous
  Country: IN (occurrence: IN)
  Receive Date: 20180729
  Receipt Date: 20180921
  Transmission Date: 20181010
  Serious: Yes (Life-Threatening, Hospitalization)
  Sender: FDA-Public Use
  Company Number: PHHY2018IN056983

PATIENT
  Age: 14 Year
  Sex: Male

DRUGS (2)
  1. PHENOBARBITONE [Concomitant]
     Active Substance: PHENOBARBITAL
     Indication: PRODUCT USED FOR UNKNOWN INDICATION
     Dosage: UNK
     Route: 048
  2. CARBAMAZEPINE. [Suspect]
     Active Substance: CARBAMAZEPINE
     Indication: PRODUCT USED FOR UNKNOWN INDICATION
     Dosage: MORE NUMBERS OF DRUG
     Route: 048

REACTIONS (9)
  - Accidental exposure to product [Unknown]
  - Hypotension [Recovered/Resolved]
  - Peripheral coldness [Recovered/Resolved]
  - Bundle branch block right [Recovered/Resolved]
  - Depressed level of consciousness [Recovered/Resolved]
  - Toxicity to various agents [Recovered/Resolved]
  - Coma [Recovered/Resolved]
  - Respiratory depression [Recovering/Resolving]
  - Conduction disorder [Recovered/Resolved]
